FAERS Safety Report 6636802-0 (Version None)
Quarter: 2010Q1

REPORT INFORMATION
  Report Type: 
  Country: None (occurrence: None)
  Receive Date: 20100316
  Receipt Date: 20100309
  Transmission Date: 20100710
  Serious: Yes (Hospitalization, Other)
  Sender: FDA-Public Use
  Company Number: CA-PFIZER INC-2010022838

PATIENT
  Age: 65 Year
  Sex: Female
  Weight: 81.9 kg

DRUGS (5)
  1. SUNITINIB MALATE [Suspect]
     Indication: ENDOMETRIAL CANCER METASTATIC
     Dosage: 50 MG, 1X/DAY, FOR 4 WKS
     Route: 048
     Dates: start: 20091203
  2. FRAGMIN [Suspect]
  3. DEXAMETHASONE [Suspect]
  4. L-THYROXIN [Concomitant]
  5. NEXIUM [Concomitant]

REACTIONS (7)
  - DYSPEPSIA [None]
  - FRACTURE [None]
  - HAEMORRHAGE [None]
  - NAUSEA [None]
  - SINUSITIS [None]
  - SYNCOPE [None]
  - VOMITING [None]
